FAERS Safety Report 21380239 (Version 1)
Quarter: 2022Q3

REPORT INFORMATION
  Report Type: Spontaneous
  Country: IT (occurrence: IT)
  Receive Date: 20220927
  Receipt Date: 20220927
  Transmission Date: 20221027
  Serious: Yes (Other)
  Sender: FDA-Public Use
  Company Number: IT-ViiV Healthcare Limited-IT2022GSK119434

PATIENT

DRUGS (3)
  1. LAMIVUDINE [Suspect]
     Active Substance: LAMIVUDINE
     Indication: HIV infection
     Dosage: UNK
     Route: 065
  2. ELVITEGRAVIR [Suspect]
     Active Substance: ELVITEGRAVIR
     Indication: HIV infection
     Dosage: UNK
     Route: 065
  3. DOLUTEGRAVIR [Suspect]
     Active Substance: DOLUTEGRAVIR
     Indication: HIV infection
     Dosage: UNK
     Route: 065

REACTIONS (7)
  - Pathogen resistance [Unknown]
  - Viral mutation identified [Unknown]
  - Blood HIV RNA increased [Not Recovered/Not Resolved]
  - Viraemia [Not Recovered/Not Resolved]
  - Treatment noncompliance [Unknown]
  - Treatment failure [Unknown]
  - Virologic failure [Not Recovered/Not Resolved]
